FAERS Safety Report 24098073 (Version 1)
Quarter: 2024Q3

REPORT INFORMATION
  Report Type: Spontaneous
  Country: CA (occurrence: CA)
  Receive Date: 20240716
  Receipt Date: 20240716
  Transmission Date: 20241017
  Serious: Yes (Other)
  Sender: NOVARTIS
  Company Number: CA-SANDOZ-SDZ2024CA064688

PATIENT
  Age: 44 Year
  Sex: Male

DRUGS (15)
  1. DICLOFENAC [Suspect]
     Active Substance: DICLOFENAC
     Indication: Product used for unknown indication
     Dosage: UNK, BID
     Route: 048
  2. DICLOFENAC [Suspect]
     Active Substance: DICLOFENAC
     Dosage: UNK, BID
     Route: 048
  3. LEFLUNOMIDE [Suspect]
     Active Substance: LEFLUNOMIDE
     Indication: Product used for unknown indication
     Dosage: UNK
     Route: 048
  4. METHOTREXATE [Suspect]
     Active Substance: METHOTREXATE
     Indication: Product used for unknown indication
     Dosage: 15 MG, QW
     Route: 058
  5. METHOTREXATE [Suspect]
     Active Substance: METHOTREXATE
     Dosage: UNK
     Route: 058
  6. METHOTREXATE [Suspect]
     Active Substance: METHOTREXATE
     Indication: Product used for unknown indication
     Dosage: 20 MG, QW
     Route: 048
  7. METHOTREXATE [Suspect]
     Active Substance: METHOTREXATE
     Dosage: UNK, QW
     Route: 048
  8. METHOTREXATE [Suspect]
     Active Substance: METHOTREXATE
     Dosage: UNK
     Route: 048
  9. COSENTYX [Suspect]
     Active Substance: SECUKINUMAB
     Indication: Psoriatic arthropathy
     Dosage: 150 MG, QMO
     Route: 058
  10. COSENTYX [Suspect]
     Active Substance: SECUKINUMAB
     Dosage: 150 MG
     Route: 058
  11. COSENTYX [Suspect]
     Active Substance: SECUKINUMAB
     Dosage: UNK
     Route: 065
  12. LYRICA [Suspect]
     Active Substance: PREGABALIN
     Indication: Product used for unknown indication
     Dosage: UNK
     Route: 065
  13. CYMBALTA [Suspect]
     Active Substance: DULOXETINE HYDROCHLORIDE
     Indication: Product used for unknown indication
     Dosage: UNK
     Route: 065
  14. NAPROXEN [Concomitant]
     Active Substance: NAPROXEN
     Indication: Product used for unknown indication
     Dosage: UNK
     Route: 065
  15. NAPROXEN [Concomitant]
     Active Substance: NAPROXEN
     Dosage: UNK
     Route: 065

REACTIONS (12)
  - Intervertebral disc degeneration [Not Recovered/Not Resolved]
  - Ankylosing spondylitis [Not Recovered/Not Resolved]
  - Psoriasis [Not Recovered/Not Resolved]
  - Undifferentiated connective tissue disease [Not Recovered/Not Resolved]
  - Arthralgia [Not Recovered/Not Resolved]
  - Arthropathy [Not Recovered/Not Resolved]
  - Back pain [Not Recovered/Not Resolved]
  - Feeling abnormal [Not Recovered/Not Resolved]
  - Musculoskeletal pain [Not Recovered/Not Resolved]
  - Thyroid disorder [Not Recovered/Not Resolved]
  - Eczema [Not Recovered/Not Resolved]
  - Rash [Not Recovered/Not Resolved]
